FAERS Safety Report 23978474 (Version 2)
Quarter: 2024Q2

REPORT INFORMATION
  Report Type: Report from Study
  Country: ES (occurrence: None)
  Receive Date: 20240614
  Receipt Date: 20240624
  Transmission Date: 20240716
  Serious: Yes (Hospitalization)
  Sender: FDA-Public Use
  Company Number: 2024A103065

PATIENT
  Age: 71 Year
  Sex: Female
  Weight: 56.5 kg

DRUGS (13)
  1. OSIMERTINIB [Suspect]
     Active Substance: OSIMERTINIB
     Indication: Non-small cell lung cancer
     Route: 048
     Dates: start: 20240311
  2. AMOXICILLIN [Suspect]
     Active Substance: AMOXICILLIN
     Indication: Pneumonia
     Route: 048
     Dates: start: 20240402, end: 20240409
  3. CLAVULANIC ACID [Suspect]
     Active Substance: CLAVULANIC ACID
     Indication: Pneumonia
     Route: 048
     Dates: start: 20240402, end: 20240409
  4. DORZOLAMIDE [Concomitant]
     Active Substance: DORZOLAMIDE
     Indication: Glaucoma
     Route: 047
  5. TIMOLOL [Concomitant]
     Active Substance: TIMOLOL
     Indication: Glaucoma
     Route: 047
  6. BUDESONIDE [Concomitant]
     Active Substance: BUDESONIDE
     Dosage: 1 INHALATION TWO TIMES A DAY
     Route: 055
  7. ZOLPIDEM TARTRATE [Concomitant]
     Active Substance: ZOLPIDEM TARTRATE
     Indication: Insomnia
     Route: 048
     Dates: start: 20240305
  8. CODEINA HEMIHIDRATO [Concomitant]
     Indication: Cough
     Route: 048
     Dates: start: 20240305
  9. PREGABALIN [Concomitant]
     Active Substance: PREGABALIN
     Route: 048
  10. ACETAMINOPHEN [Concomitant]
     Active Substance: ACETAMINOPHEN
     Indication: Pain prophylaxis
     Dosage: 650.0MG AS REQUIRED
     Route: 048
     Dates: start: 20240305
  11. MIRTAZAPINE [Concomitant]
     Active Substance: MIRTAZAPINE
     Route: 048
     Dates: start: 20240327
  12. ONDANSETRON [Concomitant]
     Active Substance: ONDANSETRON
     Indication: Nausea
     Route: 048
     Dates: start: 20240327
  13. ONDANSETRON [Concomitant]
     Active Substance: ONDANSETRON
     Indication: Vomiting
     Route: 048
     Dates: start: 20240327

REACTIONS (2)
  - Hepatobiliary disease [Recovered/Resolved]
  - Respiratory tract infection [Recovered/Resolved]

NARRATIVE: CASE EVENT DATE: 20240404
